FAERS Safety Report 5304585-2 (Version None)
Quarter: 2007Q2

REPORT INFORMATION
  Report Type: 
  Country: None (occurrence: None)
  Receive Date: 20070423
  Receipt Date: 20070423
  Transmission Date: 20071010
  Serious: Yes (Hospitalization)
  Sender: FDA-Public Use
  Company Number: JP-GLAXOSMITHKLINE-B0351252A

PATIENT
  Age: 65 Year
  Sex: Female

DRUGS (12)
  1. EPIVIR [Suspect]
     Indication: HIV INFECTION
     Dosage: 150MG TWICE PER DAY
     Route: 048
     Dates: start: 20020930
  2. ZERIT [Suspect]
     Indication: HIV INFECTION
     Dosage: 60MG PER DAY
     Route: 048
     Dates: start: 20020930, end: 20060417
  3. STOCRIN [Suspect]
     Indication: HIV INFECTION
     Dosage: 600MG PER DAY
     Route: 048
     Dates: start: 20020930
  4. ZIAGEN [Suspect]
     Indication: HIV INFECTION
     Dosage: 300MG TWICE PER DAY
     Route: 048
     Dates: start: 20060418
  5. EUGLUCON [Concomitant]
     Indication: DIABETES MELLITUS
     Dates: start: 20030401, end: 20030401
  6. PREDONINE [Concomitant]
     Indication: RHEUMATOID ARTHRITIS
     Dosage: 5MG PER DAY
     Dates: start: 20030401
  7. RIMATIL [Concomitant]
     Indication: RHEUMATOID ARTHRITIS
     Route: 048
     Dates: start: 20030401
  8. EVOXAC [Concomitant]
     Indication: RHEUMATOID ARTHRITIS
     Dosage: 30MG PER DAY
     Route: 048
     Dates: start: 20030401
  9. AZULFIDINE [Concomitant]
     Indication: RHEUMATOID ARTHRITIS
     Dosage: 1TAB PER DAY
     Route: 048
     Dates: start: 20030401
  10. TAKEPRON [Concomitant]
     Indication: RHEUMATOID ARTHRITIS
     Route: 048
     Dates: start: 20030401, end: 20050113
  11. PENTAMIDINE ISETHIONATE [Concomitant]
     Indication: INFECTION PROPHYLAXIS
     Dosage: 100MG IN THE MORNING
     Route: 055
     Dates: start: 20030919, end: 20040123
  12. LIPOVAS [Concomitant]
     Indication: HYPERLIPIDAEMIA
     Dosage: 5MG PER DAY
     Route: 048
     Dates: start: 20070216

REACTIONS (4)
  - CARDIOMEGALY [None]
  - DYSPNOEA [None]
  - HYPOTHYROIDISM [None]
  - PALPITATIONS [None]
